FAERS Safety Report 4831468-4 (Version None)
Quarter: 2005Q4

REPORT INFORMATION
  Report Type: 
  Country: None (occurrence: None)
  Receive Date: 20051116
  Receipt Date: 20051114
  Transmission Date: 20060501
  Serious: Yes (Death, Hospitalization)
  Sender: FDA-Public Use
  Company Number: 2005-BP-17989RO

PATIENT
  Age: 61 Year
  Sex: Male
  Weight: 112 kg

DRUGS (6)
  1. METHOTREXATE [Suspect]
     Indication: ARTHRITIS
     Dosage: 2.5 MG, 4 TIMES/WEEK (2.5 MG), PO 3 TO 4 YEARS
     Route: 048
  2. FOLIC ACID [Suspect]
     Indication: PROPHYLAXIS
     Dosage: 3 TO 4 YEARS
  3. PREDNISONE [Concomitant]
  4. CELEBREX [Concomitant]
  5. CALCIUM (CALCIUM) [Concomitant]
  6. MULTIVITAMIN [Concomitant]

REACTIONS (7)
  - GENERAL PHYSICAL HEALTH DETERIORATION [None]
  - INFECTION [None]
  - INTERSTITIAL LUNG DISEASE [None]
  - PNEUMONIA [None]
  - PULMONARY FIBROSIS [None]
  - RESPIRATORY FAILURE [None]
  - STOMATITIS [None]
